FAERS Safety Report 13039198 (Version 2)
Quarter: 2016Q4

REPORT INFORMATION
  Report Type: Report from Study
  Country: AR (occurrence: AR)
  Receive Date: 20161219
  Receipt Date: 20161228
  Transmission Date: 20170207
  Serious: Yes (Other)
  Sender: FDA-Public Use
  Company Number: PHHY2016AR172813

PATIENT
  Sex: Female

DRUGS (2)
  1. DIOVAN [Suspect]
     Active Substance: VALSARTAN
     Indication: RENAL HYPERTENSION
     Dosage: 1 DF (160, UNITS NOT PROVIDED), QD
     Route: 065
     Dates: start: 2007
  2. DIOVAN [Suspect]
     Active Substance: VALSARTAN
     Dosage: 1 DF, (160, UNITS NOT PROVIDED)
     Route: 065

REACTIONS (4)
  - Product use issue [Unknown]
  - Blood glucose increased [Recovering/Resolving]
  - Type 2 diabetes mellitus [Recovered/Resolved]
  - Thyroid disorder [Unknown]
